FAERS Safety Report 20476468 (Version 3)
Quarter: 2022Q1

REPORT INFORMATION
  Report Type: Report from Study
  Country: US (occurrence: US)
  Receive Date: 20220215
  Receipt Date: 20220307
  Transmission Date: 20220424
  Serious: No
  Sender: FDA-Public Use
  Company Number: US-TAKEDA-2022TUS010348

PATIENT
  Sex: Female

DRUGS (8)
  1. TEDUGLUTIDE [Suspect]
     Active Substance: TEDUGLUTIDE
     Indication: Short-bowel syndrome
     Dosage: 0.585 MILLILITER, QD
     Route: 050
     Dates: start: 20220207
  2. TEDUGLUTIDE [Suspect]
     Active Substance: TEDUGLUTIDE
     Indication: Short-bowel syndrome
     Dosage: 0.585 MILLILITER, QD
     Route: 050
     Dates: start: 20220207
  3. TEDUGLUTIDE [Suspect]
     Active Substance: TEDUGLUTIDE
     Indication: Short-bowel syndrome
     Dosage: 0.585 MILLILITER, QD
     Route: 050
     Dates: start: 20220207
  4. TEDUGLUTIDE [Suspect]
     Active Substance: TEDUGLUTIDE
     Indication: Short-bowel syndrome
     Dosage: 0.585 MILLILITER, QD
     Route: 050
     Dates: start: 20220207
  5. TEDUGLUTIDE [Suspect]
     Active Substance: TEDUGLUTIDE
     Dosage: 0.585 MILLILITER, QD
     Route: 058
     Dates: start: 20220202, end: 20220303
  6. TEDUGLUTIDE [Suspect]
     Active Substance: TEDUGLUTIDE
     Dosage: 0.585 MILLILITER, QD
     Route: 058
     Dates: start: 20220202, end: 20220303
  7. TEDUGLUTIDE [Suspect]
     Active Substance: TEDUGLUTIDE
     Dosage: 0.585 MILLILITER, QD
     Route: 058
     Dates: start: 20220202, end: 20220303
  8. TEDUGLUTIDE [Suspect]
     Active Substance: TEDUGLUTIDE
     Dosage: 0.585 MILLILITER, QD
     Route: 058
     Dates: start: 20220202, end: 20220303

REACTIONS (4)
  - Proctalgia [Unknown]
  - Abdominal pain [Unknown]
  - Nausea [Unknown]
  - Vomiting [Unknown]
